FAERS Safety Report 6235786-7 (Version None)
Quarter: 2009Q2

REPORT INFORMATION
  Report Type: 
  Country: None (occurrence: None)
  Receive Date: 20090619
  Receipt Date: 20090609
  Transmission Date: 20091009
  Serious: Yes (Life-Threatening, Hospitalization)
  Sender: FDA-Public Use
  Company Number: GB-PFIZER INC-2009176582

PATIENT
  Age: 73 Year

DRUGS (9)
  1. ZYVOX [Suspect]
     Indication: STAPHYLOCOCCAL INFECTION
     Dosage: 600 MG, 2X/DAY
     Route: 048
     Dates: start: 20090115, end: 20090129
  2. ACETYLSALICYLIC ACID [Concomitant]
     Dosage: 75 MG, 1X/DAY
     Route: 048
  3. BISOPROLOL [Concomitant]
     Dosage: 2.5 MG, 1X/DAY
     Route: 048
  4. CLOPIDOGREL [Concomitant]
     Dosage: 75 MG, 1X/DAY
     Route: 048
  5. DERMOVATE [Concomitant]
     Dosage: UNK
     Route: 061
  6. PREDNISOLONE [Concomitant]
     Dosage: 10 MG, 1X/DAY
     Route: 048
  7. ALL OTHER THERAPEUTIC PRODUCTS [Concomitant]
  8. PARAFFIN, LIQUID [Concomitant]
     Dosage: UNK
     Route: 061
  9. PARAFFIN SOFT [Concomitant]
     Dosage: UNK
     Route: 061

REACTIONS (1)
  - STEVENS-JOHNSON SYNDROME [None]
